FAERS Safety Report 21464381 (Version 1)
Quarter: 2022Q4

REPORT INFORMATION
  Report Type: Spontaneous
  Country: US (occurrence: None)
  Receive Date: 20221014
  Receipt Date: 20221014
  Transmission Date: 20230112
  Serious: No
  Sender: FDA-Public Use
  Company Number: None

PATIENT

DRUGS (3)
  1. HYOSCYAMINE SULFATE [Suspect]
     Active Substance: HYOSCYAMINE SULFATE
     Route: 048
  2. HYOSCYAMINE SULFATE [Suspect]
     Active Substance: HYOSCYAMINE SULFATE
     Route: 048
  3. HYOSCYAMINE SULFATE [Suspect]
     Active Substance: HYOSCYAMINE SULFATE
     Route: 060

REACTIONS (5)
  - Product packaging confusion [None]
  - Product physical issue [None]
  - Product dosage form issue [None]
  - Product name confusion [None]
  - Product label confusion [None]
